FAERS Safety Report 4765558-1 (Version None)
Quarter: 2005Q3

REPORT INFORMATION
  Report Type: 
  Country: None (occurrence: None)
  Receive Date: 20050906
  Receipt Date: 20050822
  Transmission Date: 20060218
  Serious: Yes (Other)
  Sender: FDA-Public Use
  Company Number: 8011355

PATIENT
  Age: 3 Year
  Sex: Female
  Weight: 3.7 kg

DRUGS (4)
  1. KEPPRA [Suspect]
     Indication: EPILEPSY
     Dosage: 350 MG 2/D PO
     Route: 048
  2. VALPROIC ACID [Suspect]
     Indication: EPILEPSY
     Dosage: PO
     Route: 048
  3. VALPROATE SODIUM [Suspect]
     Indication: EPILEPSY
     Dosage: 150 MG 2/D PO
     Route: 048
  4. INFECTOTRIMET [Suspect]
     Indication: URINARY TRACT INFECTION
     Dosage: 150 MG /D PO
     Route: 048

REACTIONS (6)
  - CONVULSION [None]
  - CYANOSIS [None]
  - DYSGEUSIA [None]
  - GASTROINTESTINAL DISORDER [None]
  - MOOD ALTERED [None]
  - PERIPHERAL ISCHAEMIA [None]
